FAERS Safety Report 6421469-7 (Version None)
Quarter: 2009Q4

REPORT INFORMATION
  Report Type: 
  Country: None (occurrence: None)
  Receive Date: 20091030
  Receipt Date: 20091022
  Transmission Date: 20100525
  Serious: Yes (Other)
  Sender: FDA-Public Use
  Company Number: JP-PFIZER INC-2009289163

PATIENT
  Age: 72 Year

DRUGS (5)
  1. CELECOXIB [Suspect]
     Dosage: 200 MG, 1X/DAY
     Route: 048
  2. OLMESARTAN [Suspect]
     Route: 048
  3. CONIEL [Suspect]
     Route: 048
  4. ALDOMET [Suspect]
     Route: 048
  5. MUCOSTA [Suspect]
     Route: 048

REACTIONS (1)
  - INTERSTITIAL LUNG DISEASE [None]
